FAERS Safety Report 9375592 (Version 2)
Quarter: 2013Q3

REPORT INFORMATION
  Report Type: Report from Study
  Country: GB (occurrence: GB)
  Receive Date: 20130628
  Receipt Date: 20130708
  Transmission Date: 20140515
  Serious: Yes (Hospitalization, Other)
  Sender: FDA-Public Use
  Company Number: PHHO2012GB017225

PATIENT
  Age: 70 Year
  Sex: Male
  Weight: 78 kg

DRUGS (11)
  1. LCZ696 [Suspect]
     Indication: CARDIAC FAILURE CHRONIC
     Dosage: CODE NOT BROKEN
     Route: 048
     Dates: start: 20121031, end: 20121126
  2. LCZ696 [Suspect]
     Dosage: CODE NOT BROKEN
     Route: 048
     Dates: start: 20121127
  3. WARFARIN [Suspect]
     Indication: ANTICOAGULANT THERAPY
     Dosage: VARIABLE
     Dates: start: 20101117, end: 20121125
  4. WARFARIN [Suspect]
     Indication: ATRIAL FIBRILLATION
  5. AMIODARONE [Suspect]
     Indication: ARRHYTHMIA
     Dosage: 200 MG, QD
     Dates: start: 20121016
  6. NEBIVOLOL [Suspect]
     Indication: CARDIAC FAILURE CHRONIC
     Dosage: 5 MG, QD
     Dates: start: 20060119
  7. FUROSEMIDE [Suspect]
     Indication: CARDIAC FAILURE CHRONIC
     Dosage: 80 MG, QD
     Dates: start: 20121016, end: 20121126
  8. METOLAZONE [Suspect]
     Indication: CARDIAC FAILURE CHRONIC
     Dosage: 2.5 MG, 2 WEEKLY
     Dates: start: 20110104
  9. BLINDED ENALAPRIL [Suspect]
     Indication: CARDIAC FAILURE CHRONIC
     Dosage: RUN-IN PHASE
  10. BLINDED LCZ696 [Suspect]
     Indication: CARDIAC FAILURE CHRONIC
     Dosage: RUN-IN PHASE
  11. BLINDED NO TREATMENT RECEIVED [Suspect]
     Indication: CARDIAC FAILURE CHRONIC
     Dosage: RUN-IN PHASE

REACTIONS (2)
  - Syncope [Recovered/Resolved]
  - Hypotension [Recovered/Resolved]
